FAERS Safety Report 6015449-3 (Version None)
Quarter: 2008Q4

REPORT INFORMATION
  Report Type: 
  Country: None (occurrence: None)
  Receive Date: 20081222
  Receipt Date: 20081212
  Transmission Date: 20090506
  Serious: Yes (Other)
  Sender: FDA-Public Use
  Company Number: PHEH2008US11060

PATIENT
  Sex: Female

DRUGS (3)
  1. EXFORGE [Suspect]
     Dosage: 5/320
     Dates: start: 20080701
  2. DIOVAN HCT [Suspect]
     Dosage: UNK
     Dates: start: 20050101
  3. HYDROCHLOROTHIAZIDE [Suspect]
     Dosage: 25 MG
     Dates: start: 20080701

REACTIONS (5)
  - CEREBROVASCULAR ACCIDENT [None]
  - DROOLING [None]
  - OEDEMA PERIPHERAL [None]
  - SENSATION OF HEAVINESS [None]
  - SPEECH DISORDER [None]
